FAERS Safety Report 7121069-X (Version None)
Quarter: 2010Q4

REPORT INFORMATION
  Report Type: 
  Country: None (occurrence: None)
  Receive Date: 20101122
  Receipt Date: 20101122
  Transmission Date: 20110411
  Serious: Yes (Hospitalization)
  Sender: FDA-Public Use
  Company Number: None

PATIENT
  Age: 26 Year
  Sex: Female
  Weight: 90.7194 kg

DRUGS (1)
  1. MAGNEVIST [Suspect]
     Indication: THYROID CANCER
     Dosage: 20CC 1 IV BOLUS
     Route: 040
     Dates: start: 20101117, end: 20101117

REACTIONS (4)
  - DYSGEUSIA [None]
  - DYSPNOEA [None]
  - NASAL CONGESTION [None]
  - UPPER AIRWAY OBSTRUCTION [None]
